FAERS Safety Report 6941036-6 (Version None)
Quarter: 2010Q3

REPORT INFORMATION
  Report Type: 
  Country: None (occurrence: None)
  Receive Date: 20100825
  Receipt Date: 20100817
  Transmission Date: 20110219
  Serious: Yes (Other)
  Sender: FDA-Public Use
  Company Number: B0671396A

PATIENT
  Sex: Male

DRUGS (3)
  1. REQUIP [Suspect]
     Indication: PARKINSON'S DISEASE
     Route: 065
     Dates: start: 20100101, end: 20100401
  2. SINEMET [Concomitant]
     Dates: start: 20060101
  3. ENTACAPONE [Concomitant]

REACTIONS (2)
  - AKATHISIA [None]
  - HALLUCINATION, VISUAL [None]
